FAERS Safety Report 9331814 (Version 1)
Quarter: 2013Q2

REPORT INFORMATION
  Report Type: Spontaneous
  Country: US (occurrence: US)
  Receive Date: 20130605
  Receipt Date: 20130605
  Transmission Date: 20140414
  Serious: No
  Sender: FDA-Public Use
  Company Number: US-ASTRAZENECA-2013SE36254

PATIENT
  Age: 78 Year
  Sex: Female
  Weight: 50.8 kg

DRUGS (3)
  1. SYMBICORT [Suspect]
     Indication: CHRONIC OBSTRUCTIVE PULMONARY DISEASE
     Dosage: SYMBICORT 160/4.5 DOSAGE STRENGTH,320 MCGS BID
     Route: 055
     Dates: start: 2009
  2. HEART MEDICATION [Concomitant]
  3. THYROID MEDICATION [Concomitant]

REACTIONS (5)
  - Gastrointestinal fungal infection [Not Recovered/Not Resolved]
  - Malaise [Not Recovered/Not Resolved]
  - Gastric disorder [Not Recovered/Not Resolved]
  - Off label use [Unknown]
  - Drug effect incomplete [Unknown]
